FAERS Safety Report 10345849 (Version 2)
Quarter: 2014Q3

REPORT INFORMATION
  Report Type: Spontaneous
  Country: IT (occurrence: IT)
  Receive Date: 20140728
  Receipt Date: 20140728
  Transmission Date: 20150326
  Serious: Yes (Hospitalization)
  Sender: FDA-Public Use
  Company Number: IT-BRISTOL-MYERS SQUIBB COMPANY-21159264

PATIENT
  Age: 88 Year
  Sex: Female
  Weight: 70 kg

DRUGS (5)
  1. FUROSEMIDE. [Concomitant]
     Active Substance: FUROSEMIDE
     Dosage: TABS
     Route: 048
  2. LOSARTAN POTASSIUM + HCTZ [Concomitant]
     Active Substance: HYDROCHLOROTHIAZIDE\LOSARTAN
     Route: 048
  3. COUMADIN [Suspect]
     Active Substance: WARFARIN SODIUM
     Indication: ATRIAL FIBRILLATION
     Dosage: INTERR06APR14 ,REINTRODUCED ON 11MAR2014
     Route: 048
     Dates: start: 20110502
  4. NIFEREX [Concomitant]
     Active Substance: IRON\POLYSACCHARIDES
     Route: 048
  5. LERCADIP [Concomitant]
     Active Substance: LERCANIDIPINE HYDROCHLORIDE
     Route: 048

REACTIONS (6)
  - International normalised ratio increased [Recovered/Resolved]
  - Anaemia [Recovered/Resolved]
  - Overdose [Unknown]
  - Rectal haemorrhage [Recovered/Resolved]
  - Diarrhoea [Unknown]
  - Weight decreased [Unknown]

NARRATIVE: CASE EVENT DATE: 20140406
